FAERS Safety Report 17930030 (Version 1)
Quarter: 2020Q2

REPORT INFORMATION
  Report Type: Spontaneous
  Country: US (occurrence: US)
  Receive Date: 20200623
  Receipt Date: 20200623
  Transmission Date: 20200714
  Serious: Yes (Other)
  Sender: FDA-Public Use
  Company Number: US-SLATE RUN PHARMACEUTICALS-20US000224

PATIENT

DRUGS (6)
  1. PRENATAL VITAMINS [MINERALS NOS;VITAMINS NOS] [Concomitant]
     Active Substance: MINERALS\VITAMINS
     Indication: MATERNAL EXPOSURE TIMING UNSPECIFIED
     Dosage: UNK, QD
     Route: 064
  2. OXYGEN. [Concomitant]
     Active Substance: OXYGEN
     Indication: MATERNAL EXPOSURE TIMING UNSPECIFIED
     Route: 064
  3. AZITHROMYCIN USP [Suspect]
     Active Substance: AZITHROMYCIN
     Indication: MATERNAL EXPOSURE TIMING UNSPECIFIED
     Route: 064
  4. METOPROLOL. [Concomitant]
     Active Substance: METOPROLOL
     Dosage: 12.5 MILLIGRAM, BID
     Route: 064
  5. CEFTRIAXONE. [Concomitant]
     Active Substance: CEFTRIAXONE
     Indication: MATERNAL EXPOSURE TIMING UNSPECIFIED
     Route: 064
  6. METOPROLOL. [Concomitant]
     Active Substance: METOPROLOL
     Indication: MATERNAL EXPOSURE TIMING UNSPECIFIED
     Dosage: 25 MILLIGRAM, Q 12 HR
     Route: 064

REACTIONS (2)
  - Premature baby [Unknown]
  - Foetal exposure during pregnancy [Unknown]
